FAERS Safety Report 4507447-3 (Version None)
Quarter: 2004Q4

REPORT INFORMATION
  Report Type: 
  Country: None (occurrence: None)
  Receive Date: 20041118
  Receipt Date: 20041110
  Transmission Date: 20050328
  Serious: No
  Sender: FDA-Public Use
  Company Number: 2004UW09707

PATIENT
  Age: 59 Year
  Sex: Male
  Weight: 112.5 kg

DRUGS (7)
  1. IRESSA [Suspect]
     Indication: NON-SMALL CELL LUNG CANCER
     Dosage: 250 MG QD PO
     Route: 048
     Dates: start: 20040416, end: 20040426
  2. ACIPHEX [Concomitant]
  3. FLOVENT [Concomitant]
  4. MULTI-VITAMIN [Concomitant]
  5. WELLBUTRIN [Concomitant]
  6. ALBUTEROL [Concomitant]
  7. ZOLOFT [Concomitant]

REACTIONS (6)
  - ATAXIA [None]
  - DIPLOPIA [None]
  - LACUNAR INFARCTION [None]
  - METASTASES TO CENTRAL NERVOUS SYSTEM [None]
  - SUBARACHNOID HAEMORRHAGE [None]
  - VISION BLURRED [None]
